FAERS Safety Report 23440127 (Version 2)
Quarter: 2024Q2

REPORT INFORMATION
  Report Type: Spontaneous
  Country: CZ (occurrence: CZ)
  Receive Date: 20240124
  Receipt Date: 20240617
  Transmission Date: 20240716
  Serious: Yes (Death, Other)
  Sender: FDA-Public Use
  Company Number: CZ-JNJFOC-20240148965

PATIENT

DRUGS (4)
  1. CARVYKTI [Suspect]
     Active Substance: CILTACABTAGENE AUTOLEUCEL
     Indication: Plasma cell myeloma
     Route: 065
  2. CARVYKTI [Suspect]
     Active Substance: CILTACABTAGENE AUTOLEUCEL
     Indication: B-cell lymphoma
  3. CARVYKTI [Suspect]
     Active Substance: CILTACABTAGENE AUTOLEUCEL
     Indication: B-cell lymphoma
  4. LEVOFLOXACIN [Concomitant]
     Active Substance: LEVOFLOXACIN
     Indication: Prophylaxis

REACTIONS (10)
  - Pneumonia fungal [Fatal]
  - Pneumonia cytomegaloviral [Fatal]
  - Sepsis [Fatal]
  - Pneumonia bacterial [Fatal]
  - Neutropenia [Unknown]
  - Cytokine release syndrome [Unknown]
  - COVID-19 [Unknown]
  - Rhinovirus infection [Unknown]
  - Parainfluenzae virus infection [Unknown]
  - Coronavirus infection [Unknown]
